FAERS Safety Report 6124332-4 (Version None)
Quarter: 2009Q1

REPORT INFORMATION
  Report Type: 
  Country: None (occurrence: None)
  Receive Date: 20090318
  Receipt Date: 20090318
  Transmission Date: 20090719
  Serious: Yes (Life-Threatening, Other)
  Sender: FDA-Public Use
  Company Number: None

PATIENT
  Age: 42 Year
  Sex: Male
  Weight: 82.5547 kg

DRUGS (3)
  1. PROAIR HFA [Suspect]
     Indication: ASTHMA
     Dosage: 90MCG 4 TIMES DAILY PO
     Route: 048
     Dates: start: 20090115, end: 20090317
  2. PROAIR HFA [Suspect]
     Indication: CHRONIC OBSTRUCTIVE PULMONARY DISEASE
     Dosage: 90MCG 4 TIMES DAILY PO
     Route: 048
     Dates: start: 20090115, end: 20090317
  3. . [Concomitant]

REACTIONS (4)
  - DRUG EFFECT DECREASED [None]
  - FEAR [None]
  - PRESYNCOPE [None]
  - PRODUCT QUALITY ISSUE [None]
